FAERS Safety Report 9135320 (Version 3)
Quarter: 2013Q3

REPORT INFORMATION
  Report Type: Report from Study
  Country: AU (occurrence: AU)
  Receive Date: 20130304
  Receipt Date: 20130905
  Transmission Date: 20140515
  Serious: Yes (Hospitalization)
  Sender: FDA-Public Use
  Company Number: AU-ASTRAZENECA-2013SE13137

PATIENT
  Age: 24700 Day
  Sex: Male

DRUGS (16)
  1. AZD6140 [Suspect]
     Indication: CORONARY ARTERY DISEASE
     Route: 048
     Dates: start: 20120208, end: 20120806
  2. AZD6140 [Suspect]
     Indication: CORONARY ARTERY DISEASE
     Route: 048
     Dates: start: 20120912, end: 20120912
  3. AZD6140 [Suspect]
     Indication: CORONARY ARTERY DISEASE
     Route: 048
     Dates: start: 20120925, end: 20130119
  4. AZD6140 [Suspect]
     Indication: CORONARY ARTERY DISEASE
     Route: 048
     Dates: end: 20130213
  5. ASA [Concomitant]
     Route: 048
     Dates: end: 20120912
  6. CRESTOR [Concomitant]
     Indication: HYPERLIPIDAEMIA
     Route: 048
  7. NOVORAPID [Concomitant]
     Indication: TYPE 2 DIABETES MELLITUS
     Route: 058
  8. LANTUS [Concomitant]
     Indication: TYPE 2 DIABETES MELLITUS
     Route: 058
  9. LIPIDIL [Concomitant]
     Indication: HYPERLIPIDAEMIA
     Route: 048
  10. PARIET [Concomitant]
     Indication: GASTROINTESTINAL DISORDER
     Route: 048
  11. PARIET [Concomitant]
     Indication: GASTROINTESTINAL DISORDER
     Route: 048
     Dates: start: 20130219, end: 20130507
  12. DIABEX XR [Concomitant]
     Indication: TYPE 2 DIABETES MELLITUS
     Route: 048
  13. AVAPRO [Concomitant]
     Indication: HYPERTENSION
     Route: 048
  14. NATRILIX [Concomitant]
     Indication: HYPERTENSION
     Route: 048
  15. EZETROL [Concomitant]
     Indication: HYPERLIPIDAEMIA
     Route: 048
  16. METOPROLOL [Concomitant]
     Indication: CORONARY ARTERY DISEASE
     Route: 048

REACTIONS (1)
  - Iron deficiency anaemia [Recovered/Resolved]
